FAERS Safety Report 9320160 (Version 1)
Quarter: 2013Q2

REPORT INFORMATION
  Report Type: Spontaneous
  Country: US (occurrence: US)
  Receive Date: 20130530
  Receipt Date: 20130530
  Transmission Date: 20140414
  Serious: Yes (Hospitalization)
  Sender: FDA-Public Use
  Company Number: US-TEVA-407771USA

PATIENT
  Age: 54 Year
  Sex: Female

DRUGS (2)
  1. COPAXONE [Suspect]
  2. AVONEX [Suspect]
     Indication: MULTIPLE SCLEROSIS
     Dosage: WEEKLY
     Route: 030
     Dates: start: 19970101

REACTIONS (3)
  - Foot fracture [Not Recovered/Not Resolved]
  - Hot flush [Unknown]
  - Headache [Unknown]
